FAERS Safety Report 22029253 (Version 1)
Quarter: 2023Q1

REPORT INFORMATION
  Report Type: Spontaneous
  Country: US (occurrence: US)
  Receive Date: 20230223
  Receipt Date: 20230223
  Transmission Date: 20230418
  Serious: No
  Sender: FDA-Public Use
  Company Number: US-PFIZER INC-PV202300032427

PATIENT
  Age: 30 Year
  Sex: Female

DRUGS (8)
  1. EUCRISA [Suspect]
     Active Substance: CRISABOROLE
     Indication: Dermatitis atopic
     Dosage: UNK, 2X/DAY (AA OF BODY BID/PRN)
  2. EUCRISA [Suspect]
     Active Substance: CRISABOROLE
     Indication: Seborrhoeic dermatitis
  3. EUCRISA [Suspect]
     Active Substance: CRISABOROLE
     Indication: Neurodermatitis
  4. EUCRISA [Suspect]
     Active Substance: CRISABOROLE
     Indication: Post inflammatory pigmentation change
  5. EUCRISA [Suspect]
     Active Substance: CRISABOROLE
     Indication: Pruritus
  6. EUCRISA [Suspect]
     Active Substance: CRISABOROLE
     Indication: Respiratory disorder
  7. DERMA-SMOOTHE/FS [Concomitant]
     Active Substance: FLUOCINOLONE ACETONIDE
     Dosage: UNK, WEEKLY (QWK TO SCALP)
  8. CLOBETASOL [Concomitant]
     Active Substance: CLOBETASOL
     Indication: Rash
     Dosage: UNK, 2X/DAY (BID 2 WEEKS PRN)

REACTIONS (1)
  - Therapeutic product effect incomplete [Unknown]
